FAERS Safety Report 5037067-6 (Version None)
Quarter: 2006Q2

REPORT INFORMATION
  Report Type: 
  Country: None (occurrence: None)
  Receive Date: 20060623
  Receipt Date: 20060608
  Transmission Date: 20061013
  Serious: Yes (Death)
  Sender: FDA-Public Use
  Company Number: 2006073816

PATIENT
  Age: 74 Year
  Sex: Male

DRUGS (6)
  1. ZYVOX [Suspect]
     Indication: STAPHYLOCOCCAL INFECTION
     Dosage: 1200 MG, ORAL
     Route: 048
     Dates: start: 20040312, end: 20040910
  2. WARFARIN SODIUM [Concomitant]
  3. DOGMATYL (SULPIRIDE) [Concomitant]
  4. MUCOSTA (REBAMIPIDE) [Concomitant]
  5. VITAMEDIN CAPSULE (BENFOTIAMINE, CYTANOCOBALAMIN, PYRIDOXINE HYDROCHLO [Concomitant]
  6. FAMOTIDINE [Concomitant]

REACTIONS (7)
  - DYSPNOEA [None]
  - HAEMOGLOBIN INCREASED [None]
  - INTERNATIONAL NORMALISED RATIO INCREASED [None]
  - METABOLIC ACIDOSIS [None]
  - MULTI-ORGAN FAILURE [None]
  - PLATELET COUNT DECREASED [None]
  - PROTHROMBIN TIME PROLONGED [None]
